FAERS Safety Report 6087960-0 (Version None)
Quarter: 2009Q1

REPORT INFORMATION
  Report Type: 
  Country: None (occurrence: None)
  Receive Date: 20090213
  Receipt Date: 20090201
  Transmission Date: 20090719
  Serious: Yes (Other)
  Sender: FDA-Public Use
  Company Number: CHPA2009US03001

PATIENT
  Age: 7 Year
  Sex: Male
  Weight: 19.5 kg

DRUGS (2)
  1. TRIAMINIC SRT [Suspect]
     Indication: COUGH
     Dosage: 2 DF, ONCE/SINGLE, ORAL
     Route: 048
     Dates: start: 20090201, end: 20090201
  2. TRIAMINIC SRT [Suspect]
     Indication: NASOPHARYNGITIS
     Dosage: 2 DF, ONCE/SINGLE, ORAL
     Route: 048
     Dates: start: 20090201, end: 20090201

REACTIONS (3)
  - DIZZINESS [None]
  - GAIT DISTURBANCE [None]
  - MYDRIASIS [None]
